FAERS Safety Report 4864692-5 (Version None)
Quarter: 2005Q4

REPORT INFORMATION
  Report Type: 
  Country: None (occurrence: None)
  Receive Date: 20051222
  Receipt Date: 20051005
  Transmission Date: 20060501
  Serious: Yes (Hospitalization)
  Sender: FDA-Public Use
  Company Number: US-MERCK-0510USA03951

PATIENT
  Age: 34 Year
  Sex: Male
  Weight: 114 kg

DRUGS (8)
  1. ALTACE [Concomitant]
     Route: 065
  2. SKELAXIN [Concomitant]
     Route: 065
  3. ULTRAM [Concomitant]
     Route: 065
  4. [THERAPY UNSPECIFIED] [Concomitant]
     Indication: PAIN
     Route: 065
  5. [THERAPY UNSPECIFIED] [Concomitant]
     Indication: MUSCLE RELAXANT THERAPY
     Route: 065
  6. VIOXX [Suspect]
     Indication: PAIN
     Route: 048
     Dates: start: 20030101, end: 20030101
  7. TYLENOL [Concomitant]
     Route: 065
  8. IBUPROFEN [Concomitant]
     Route: 065

REACTIONS (6)
  - BLOOD CHOLESTEROL INCREASED [None]
  - CARDIOVASCULAR DISORDER [None]
  - CHEST PAIN [None]
  - CORONARY ARTERY DISEASE [None]
  - CORONARY ARTERY OCCLUSION [None]
  - NECK PAIN [None]
